FAERS Safety Report 9199346 (Version 3)
Quarter: 2013Q2

REPORT INFORMATION
  Report Type: Spontaneous
  Country: US (occurrence: US)
  Receive Date: 20130329
  Receipt Date: 20130416
  Transmission Date: 20140414
  Serious: No
  Sender: FDA-Public Use
  Company Number: US-009507513-1303USA012018

PATIENT
  Age: 15 Year
  Sex: Female
  Weight: 112.93 kg

DRUGS (1)
  1. IMPLANON [Suspect]
     Indication: CONTRACEPTION
     Dosage: UNK
     Route: 059

REACTIONS (4)
  - Weight increased [Not Recovered/Not Resolved]
  - Device dislocation [Unknown]
  - Medical device complication [Unknown]
  - Incorrect drug administration duration [Unknown]
